FAERS Safety Report 14948127 (Version 4)
Quarter: 2018Q2

REPORT INFORMATION
  Report Type: Report from Study
  Country: None (occurrence: TR)
  Receive Date: 20180529
  Receipt Date: 20180629
  Transmission Date: 20180711
  Serious: Yes (Hospitalization)
  Sender: FDA-Public Use
  Company Number: TR-ABBVIE-18K-161-2369672-00

PATIENT
  Age: 67 Year
  Sex: Male
  Weight: 72 kg

DRUGS (6)
  1. LYRICA [Concomitant]
     Active Substance: PREGABALIN
     Indication: SLEEP DISORDER
     Route: 048
     Dates: start: 20180524
  2. XANAX [Concomitant]
     Active Substance: ALPRAZOLAM
     Indication: ANXIETY
     Route: 048
  3. DUODOPA [Suspect]
     Active Substance: CARBIDOPA\LEVODOPA
     Indication: PARKINSON^S DISEASE
     Dosage: MORNING DOSE: 4.00 ML?CONTINUOUS DOSE: 2.40 ML?EXTRA DOSE. 1.50 ML
     Route: 050
     Dates: start: 20180523, end: 20180528
  4. DUPHALAC [Concomitant]
     Active Substance: LACTULOSE
     Indication: CONSTIPATION
     Route: 048
  5. PEXA XR [Concomitant]
     Indication: PARKINSON^S DISEASE
     Route: 048
     Dates: start: 20180524
  6. DUODOPA [Suspect]
     Active Substance: CARBIDOPA\LEVODOPA
     Dosage: MORNING DOSE: 4.00 ML?CONTINUOUS DOSE: 2.70 ML?EXTRA DOSE. 1.50 ML
     Route: 050
     Dates: start: 20180528

REACTIONS (3)
  - Stoma site discharge [Recovering/Resolving]
  - Infection [Recovering/Resolving]
  - Stoma site infection [Recovering/Resolving]

NARRATIVE: CASE EVENT DATE: 20180525
